FAERS Safety Report 6235624-2 (Version None)
Quarter: 2009Q2

REPORT INFORMATION
  Report Type: 
  Country: None (occurrence: None)
  Receive Date: 20090616
  Receipt Date: 20090601
  Transmission Date: 20091009
  Serious: Yes (Other)
  Sender: FDA-Public Use
  Company Number: 2009S1009695

PATIENT

DRUGS (1)
  1. LAMOTRIGINE [Suspect]
     Indication: MYOCLONIC EPILEPSY
     Dosage: 200 MG; TWICE A DAY TRANSPLACENTAL
     Route: 064

REACTIONS (3)
  - DRUG EXPOSURE DURING PREGNANCY [None]
  - PATENT DUCTUS ARTERIOSUS [None]
  - PULMONARY VALVE STENOSIS [None]
